FAERS Safety Report 25174712 (Version 1)
Quarter: 2025Q2

REPORT INFORMATION
  Report Type: Spontaneous
  Country: CN (occurrence: CN)
  Receive Date: 20250408
  Receipt Date: 20250408
  Transmission Date: 20250717
  Serious: Yes (Hospitalization, Other)
  Sender: ASTELLAS
  Company Number: CN-ASTELLAS-2025-AER-018320

PATIENT
  Age: 42 Year
  Sex: Male
  Weight: 55 kg

DRUGS (1)
  1. PROGRAF [Suspect]
     Active Substance: TACROLIMUS
     Indication: Renal transplant
     Route: 048
     Dates: start: 20221108, end: 20250331

REACTIONS (2)
  - Diabetes mellitus [Recovering/Resolving]
  - IgA nephropathy [Unknown]

NARRATIVE: CASE EVENT DATE: 20250218
